FAERS Safety Report 12790059 (Version 1)
Quarter: 2016Q3

REPORT INFORMATION
  Report Type: Spontaneous
  Country: CA (occurrence: CA)
  Receive Date: 20160928
  Receipt Date: 20160928
  Transmission Date: 20161109
  Serious: Yes (Other)
  Sender: FDA-Public Use
  Company Number: CA-PFIZER INC-2016453720

PATIENT
  Age: 62 Year
  Sex: Female
  Weight: 97 kg

DRUGS (4)
  1. FOLIC ACID. [Concomitant]
     Active Substance: FOLIC ACID
     Dosage: UNK
     Dates: start: 2013
  2. METHOTREXATE SODIUM. [Suspect]
     Active Substance: METHOTREXATE SODIUM
     Dosage: UNK UNK, WEEKLY
     Dates: start: 2013
  3. LORAZEPAM. [Suspect]
     Active Substance: LORAZEPAM
     Dosage: 2 MG, AT BEDIME
     Dates: start: 2004
  4. QUININE [Concomitant]
     Active Substance: QUININE
     Dosage: AT BEDTIME
     Dates: start: 1996

REACTIONS (1)
  - Deep vein thrombosis [Unknown]
